FAERS Safety Report 22162378 (Version 1)
Quarter: 2023Q1

REPORT INFORMATION
  Report Type: Spontaneous
  Country: US (occurrence: US)
  Receive Date: 20230331
  Receipt Date: 20230331
  Transmission Date: 20230417
  Serious: No
  Sender: FDA-Public Use
  Company Number: US-PFIZER INC-202300136299

PATIENT
  Age: 66 Year
  Sex: Male
  Weight: 86.64 kg

DRUGS (3)
  1. PAXLOVID [Suspect]
     Active Substance: NIRMATRELVIR\RITONAVIR
     Indication: COVID-19 treatment
     Dosage: [PF-07321332 300 MG]/[RITONAVIR 100 MG]; 2X/DAY
     Dates: start: 20230315, end: 20230319
  2. METFORMIN [Concomitant]
     Active Substance: METFORMIN HYDROCHLORIDE
     Dosage: 500 MG, 2X/DAY
     Route: 048
     Dates: start: 202212
  3. CHOLECALCIFEROL [Concomitant]
     Active Substance: CHOLECALCIFEROL
     Dosage: UNK

REACTIONS (20)
  - Feeling abnormal [Recovering/Resolving]
  - Illness [Recovering/Resolving]
  - Skin laceration [Unknown]
  - Skin fissures [Unknown]
  - Skin exfoliation [Unknown]
  - Skin haemorrhage [Unknown]
  - Gait disturbance [Unknown]
  - Dehydration [Unknown]
  - Burning sensation [Unknown]
  - Skin wrinkling [Not Recovered/Not Resolved]
  - Dry skin [Not Recovered/Not Resolved]
  - Oligodipsia [Unknown]
  - Hiccups [Unknown]
  - Abdominal pain [Unknown]
  - Abdominal pain upper [Unknown]
  - Skin burning sensation [Unknown]
  - Erythema [Unknown]
  - Rash macular [Unknown]
  - Dyspepsia [Unknown]
  - Pruritus [Not Recovered/Not Resolved]

NARRATIVE: CASE EVENT DATE: 20230301
